FAERS Safety Report 6012675-4 (Version None)
Quarter: 2008Q4

REPORT INFORMATION
  Report Type: 
  Country: None (occurrence: None)
  Receive Date: 20081210
  Receipt Date: 20081121
  Transmission Date: 20090506
  Serious: Yes (Other)
  Sender: FDA-Public Use
  Company Number: GAM-216-08-DE

PATIENT
  Age: 64 Year
  Sex: Female

DRUGS (1)
  1. OCTAGAM [Suspect]
     Indication: IDIOPATHIC THROMBOCYTOPENIC PURPURA
     Dosage: 30 G I.V.
     Route: 042
     Dates: start: 20080922, end: 20080922

REACTIONS (1)
  - CEREBROVASCULAR ACCIDENT [None]
